FAERS Safety Report 24043633 (Version 3)
Quarter: 2024Q3

REPORT INFORMATION
  Report Type: Report from Study
  Country: US (occurrence: US)
  Receive Date: 20240703
  Receipt Date: 20240709
  Transmission Date: 20241016
  Serious: Yes (Death)
  Sender: ROCHE
  Company Number: US-ROCHE-10000002795

PATIENT
  Age: 9 Year
  Sex: Male
  Weight: 35.4 kg

DRUGS (1)
  1. EVRYSDI [Suspect]
     Active Substance: RISDIPLAM
     Indication: Spinal muscular atrophy
     Route: 048
     Dates: start: 20210430

REACTIONS (1)
  - Death [Fatal]

NARRATIVE: CASE EVENT DATE: 20240609
